FAERS Safety Report 5023589-0 (Version None)
Quarter: 2006Q2

REPORT INFORMATION
  Report Type: 
  Country: None (occurrence: None)
  Receive Date: 20060612
  Receipt Date: 20040129
  Transmission Date: 20061013
  Serious: Yes (Hospitalization)
  Sender: FDA-Public Use
  Company Number: JP-ROCHE-357708

PATIENT
  Age: 51 Year
  Sex: Male

DRUGS (5)
  1. CELLCEPT [Suspect]
     Route: 048
     Dates: start: 20020815
  2. RIBAVIRIN [Suspect]
     Indication: HEPATITIS C
     Route: 065
  3. PROGRAF [Concomitant]
  4. STEROID [Concomitant]
  5. INTERFERON ALFA-2B [Concomitant]

REACTIONS (6)
  - APLASIA PURE RED CELL [None]
  - BONE MARROW FAILURE [None]
  - DISEASE RECURRENCE [None]
  - HEPATITIS C [None]
  - NORMOCHROMIC NORMOCYTIC ANAEMIA [None]
  - PANCYTOPENIA [None]
